FAERS Safety Report 12903632 (Version 3)
Quarter: 2016Q4

REPORT INFORMATION
  Report Type: Spontaneous
  Country: BR (occurrence: BR)
  Receive Date: 20161102
  Receipt Date: 20161227
  Transmission Date: 20170207
  Serious: Yes (Hospitalization)
  Sender: FDA-Public Use
  Company Number: BR-DSJP-DSE-2016-110099

PATIENT

DRUGS (13)
  1. DIOSMIN [Suspect]
     Active Substance: DIOSMIN
     Indication: PRODUCT USED FOR UNKNOWN INDICATION
     Dosage: 450/50 MG, UNK
     Dates: start: 2008
  2. CLOPIDOGREL [Suspect]
     Active Substance: CLOPIDOGREL BISULFATE
     Indication: ANTIPLATELET THERAPY
     Dosage: UNK
     Dates: start: 2008
  3. ATORVASTATINA [Suspect]
     Active Substance: ATORVASTATIN
     Indication: PRODUCT USED FOR UNKNOWN INDICATION
     Dosage: 10 MG, UNK
     Dates: start: 2008
  4. CLOPIDOGREL [Suspect]
     Active Substance: CLOPIDOGREL BISULFATE
     Indication: PRODUCT USED FOR UNKNOWN INDICATION
  5. PURAN [Suspect]
     Active Substance: LEVOTHYROXINE SODIUM
     Indication: DIURETIC THERAPY
     Dosage: 40 MG, BID
     Dates: start: 2008
  6. BENICAR AMLO 40 MG + 5 MG COM REV CT BL AL/AL X 30 [Suspect]
     Active Substance: AMLODIPINE BESYLATE\OLMESARTAN MEDOXOMIL
     Indication: HYPERTENSION
     Dosage: 40/5 MG, QD
     Route: 048
     Dates: start: 201602, end: 201610
  7. INGREDIENTS UNKNOWN [Concomitant]
     Active Substance: UNSPECIFIED INGREDIENT
     Indication: GASTROINTESTINAL MOTILITY DISORDER
     Dosage: UNK
  8. PURAN [Suspect]
     Active Substance: LEVOTHYROXINE SODIUM
     Dosage: 40 MG, QD
  9. DOSS                               /00080501/ [Suspect]
     Active Substance: DANTHRON\DOCUSATE SODIUM
     Indication: PRODUCT USED FOR UNKNOWN INDICATION
     Dosage: 1000 IU, UNK
     Dates: start: 2008
  10. DUSPATALIN                         /00139402/ [Suspect]
     Active Substance: MEBEVERINE HYDROCHLORIDE
     Indication: PRODUCT USED FOR UNKNOWN INDICATION
     Dosage: UNK
     Dates: start: 2008
  11. ATENOLOL. [Suspect]
     Active Substance: ATENOLOL
     Indication: PRODUCT USED FOR UNKNOWN INDICATION
     Dosage: 50 MG, UNK
     Dates: start: 2008
  12. FRONTAL [Suspect]
     Active Substance: ALPRAZOLAM
     Indication: PRODUCT USED FOR UNKNOWN INDICATION
     Dosage: UNK
     Dates: start: 2008
  13. ENDOFOLIN [Suspect]
     Active Substance: FOLIC ACID
     Indication: PRODUCT USED FOR UNKNOWN INDICATION
     Dosage: 5 MG, UNK
     Dates: start: 2008

REACTIONS (8)
  - Cardiomegaly [Not Recovered/Not Resolved]
  - Lymphadenitis [Recovered/Resolved]
  - Pulmonary oedema [Recovered/Resolved]
  - Oedema [Unknown]
  - Intentional product misuse [Recovered/Resolved]
  - Weight decreased [Recovered/Resolved]
  - Pain [Not Recovered/Not Resolved]
  - Thyroid mass [Unknown]

NARRATIVE: CASE EVENT DATE: 2008
